FAERS Safety Report 7627865-4 (Version None)
Quarter: 2011Q3

REPORT INFORMATION
  Report Type: 
  Country: None (occurrence: None)
  Receive Date: 20110721
  Receipt Date: 20110718
  Transmission Date: 20111222
  Serious: Yes (Other)
  Sender: FDA-Public Use
  Company Number: DE-MERCK-1107DEU00086

PATIENT
  Age: 78 Year
  Sex: Female

DRUGS (1)
  1. FOSAMAX [Suspect]
     Route: 048
     Dates: start: 20040901, end: 20081001

REACTIONS (3)
  - TOOTH EXTRACTION [None]
  - GINGIVAL PAIN [None]
  - OSTEONECROSIS OF JAW [None]
